FAERS Safety Report 25971195 (Version 1)
Quarter: 2025Q4

REPORT INFORMATION
  Report Type: Spontaneous
  Country: IN (occurrence: IN)
  Receive Date: 20251028
  Receipt Date: 20251028
  Transmission Date: 20260118
  Serious: Yes (Other)
  Sender: MERCK SHARP & DOHME LLC
  Company Number: IN-009507513-2342465

PATIENT
  Age: 65 Year

DRUGS (4)
  1. PEMBROLIZUMAB [Suspect]
     Active Substance: PEMBROLIZUMAB
     Indication: HER2 mutant non-small cell lung cancer
     Dosage: 16 WEEKS
     Dates: start: 2025
  2. PEMBROLIZUMAB [Suspect]
     Active Substance: PEMBROLIZUMAB
     Indication: HER2 mutant non-small cell lung cancer
     Dosage: MAINTENANCE
  3. PACLITAXEL [Suspect]
     Active Substance: PACLITAXEL
     Indication: HER2 mutant non-small cell lung cancer
     Dosage: COMPLETED 16 WEEKS
     Dates: start: 2025
  4. CARBOPLATIN [Suspect]
     Active Substance: CARBOPLATIN
     Indication: HER2 mutant non-small cell lung cancer
     Dosage: COMPLETED 16 WEEKS
     Dates: start: 2025

REACTIONS (5)
  - Neuropathy peripheral [Unknown]
  - Immune-mediated hypothyroidism [Unknown]
  - Therapy partial responder [Unknown]
  - Immune-mediated hepatitis [Unknown]
  - Inappropriate schedule of product administration [Unknown]

NARRATIVE: CASE EVENT DATE: 20250101
